FAERS Safety Report 9836725 (Version 2)
Quarter: 2014Q1

REPORT INFORMATION
  Report Type: Spontaneous
  Country: US (occurrence: None)
  Receive Date: 20131127
  Receipt Date: 20140228
  Transmission Date: 20141002
  Serious: Yes (Other)
  Sender: FDA-Public Use
  Company Number: 223911

PATIENT
  Age: 73 Year
  Sex: Female

DRUGS (1)
  1. PICATO GEL [Suspect]
     Indication: ACTINIC KERATOSIS
     Route: 061
     Dates: start: 20130910, end: 20130910

REACTIONS (12)
  - Application site pain [None]
  - Application site pain [None]
  - Application site exfoliation [None]
  - Application site erythema [None]
  - Application site pruritus [None]
  - Application site discolouration [None]
  - Application site discolouration [None]
  - Drug prescribing error [None]
  - Incorrect dose administered [None]
  - Incorrect drug administration duration [None]
  - Application site vesicles [None]
  - Drug administered at inappropriate site [None]
